FAERS Safety Report 24141466 (Version 1)
Quarter: 2024Q3

REPORT INFORMATION
  Report Type: Report from Study
  Country: FR (occurrence: FR)
  Receive Date: 20240726
  Receipt Date: 20240726
  Transmission Date: 20241017
  Serious: Yes (Hospitalization, Other)
  Sender: RANBAXY
  Company Number: FR-SUN PHARMACEUTICAL INDUSTRIES LTD-2024RR-458221

PATIENT
  Sex: Female

DRUGS (1)
  1. TILDRAKIZUMAB [Suspect]
     Active Substance: TILDRAKIZUMAB
     Indication: Psoriasis
     Dosage: 200 MILLIGRAM(S), 1 IN 12 WEEK
     Route: 058
     Dates: start: 20230630, end: 20240708

REACTIONS (1)
  - Borderline ovarian tumour [Recovered/Resolved]

NARRATIVE: CASE EVENT DATE: 20240328
